FAERS Safety Report 8525246 (Version 6)
Quarter: 2012Q4

REPORT INFORMATION
  Report Type: 
  Country: CA (occurrence: CA)
  Receive Date: 20120423
  Receipt Date: 20120921
  Transmission Date: 20130627
  Serious: Yes (Other)
  Sender: FDA-Public Use
  Company Number: PHHY2012CA033506

PATIENT
  Sex: Female
  Weight: 63.04 kg

DRUGS (1)
  1. EXTAVIA [Suspect]
     Indication: RELAPSING-REMITTING MULTIPLE SCLEROSIS
     Dosage: 8 MIU, QOD
     Route: 058
     Dates: start: 20120402, end: 20120814

REACTIONS (7)
  - Psoriasis [Unknown]
  - Vitiligo [Not Recovered/Not Resolved]
  - Rash erythematous [Not Recovered/Not Resolved]
  - Rash pruritic [Unknown]
  - Gait disturbance [Unknown]
  - Injection site erythema [Unknown]
  - Drug hypersensitivity [Unknown]
